FAERS Safety Report 10757789 (Version 1)
Quarter: 2015Q1

REPORT INFORMATION
  Report Type: Spontaneous
  Country: US (occurrence: US)
  Receive Date: 20150203
  Receipt Date: 20150203
  Transmission Date: 20150721
  Serious: No
  Sender: FDA-Public Use
  Company Number: US-TEVA-488152USA

PATIENT
  Sex: Male

DRUGS (1)
  1. DEXMETHYLPHENIDATE [Suspect]
     Active Substance: DEXMETHYLPHENIDATE HYDROCHLORIDE

REACTIONS (5)
  - Drug ineffective [Unknown]
  - Drug effect decreased [Unknown]
  - Agitation [Unknown]
  - Product substitution issue [Unknown]
  - Disturbance in attention [Unknown]
